FAERS Safety Report 8303431-2 (Version None)
Quarter: 2012Q2

REPORT INFORMATION
  Report Type: 
  Country: None (occurrence: None)
  Receive Date: 20120423
  Receipt Date: 20120420
  Transmission Date: 20120825
  Serious: No
  Sender: FDA-Public Use
  Company Number: US-PFIZER INC-2012092076

PATIENT

DRUGS (6)
  1. NEURONTIN [Suspect]
     Dosage: UNK
  2. DAPTOMYCIN [Suspect]
     Dosage: UNK
  3. IBUPROFEN (ADVIL) [Suspect]
     Dosage: UNK
  4. HUMALOG [Suspect]
     Dosage: UNK
  5. LITHIUM CARBONATE [Suspect]
     Dosage: UNK
  6. METFORMIN HCL [Suspect]
     Dosage: UNK

REACTIONS (1)
  - DRUG HYPERSENSITIVITY [None]
